FAERS Safety Report 15410827 (Version 1)
Quarter: 2018Q3

REPORT INFORMATION
  Report Type: Report from Study
  Country: AT (occurrence: AT)
  Receive Date: 20180921
  Receipt Date: 20180921
  Transmission Date: 20181010
  Serious: Yes (Other)
  Sender: FDA-Public Use
  Company Number: AT-TEVA-2018-AT-957177

PATIENT
  Age: 76 Year
  Sex: Female

DRUGS (12)
  1. APREDNISLON [Concomitant]
     Active Substance: PREDNISOLONE
  2. ACEMIN [Concomitant]
     Active Substance: LISINOPRIL
  3. PANTOLOC [Concomitant]
     Active Substance: PANTOPRAZOLE SODIUM
  4. ROACTEMRA 162 MG?INJEKTIONSL?SUNG IN EINER FERTIGSPRITZE [Concomitant]
     Indication: RHEUMATOID ARTHRITIS
     Route: 058
     Dates: start: 201803, end: 201808
  5. LASILACTON [Concomitant]
     Active Substance: FUROSEMIDE\SPIRONOLACTONE
  6. XARELTO [Concomitant]
     Active Substance: RIVAROXABAN
  7. NOVALGIN [Concomitant]
  8. METHOTREXATE. [Suspect]
     Active Substance: METHOTREXATE
     Indication: RHEUMATOID ARTHRITIS
     Route: 058
     Dates: start: 201706, end: 201808
  9. DIGIMERCK [Concomitant]
     Active Substance: DIGITOXIN
  10. FOLSAN [Concomitant]
     Active Substance: FOLIC ACID
  11. BERODUAL [Concomitant]
     Active Substance: FENOTEROL HYDROBROMIDE\IPRATROPIUM BROMIDE
  12. CONCOR [Concomitant]
     Active Substance: BISOPROLOL FUMARATE

REACTIONS (1)
  - Bicytopenia [Not Recovered/Not Resolved]

NARRATIVE: CASE EVENT DATE: 20180823
